FAERS Safety Report 7378650-2 (Version None)
Quarter: 2011Q1

REPORT INFORMATION
  Report Type: 
  Country: None (occurrence: None)
  Receive Date: 20110328
  Receipt Date: 20110323
  Transmission Date: 20110831
  Serious: Yes (Life-Threatening, Hospitalization)
  Sender: FDA-Public Use
  Company Number: GB-PFIZER INC-2008042725

PATIENT
  Age: 24 Year
  Sex: Female

DRUGS (6)
  1. HYOSCINE [Suspect]
  2. SERTRALINE HYDROCHLORIDE [Suspect]
  3. AMOXICILLIN [Suspect]
  4. SULPIRIDE [Concomitant]
     Indication: SCHIZOPHRENIA
     Dosage: 400 MG, 1X/DAY
     Route: 048
  5. CLOZARIL [Suspect]
     Indication: SCHIZOPHRENIA
     Dosage: 1000 MG, UNK
     Route: 048
     Dates: start: 20030623, end: 20060504
  6. MOCLOBEMIDE [Concomitant]
     Indication: DEPRESSION
     Route: 048

REACTIONS (6)
  - OVERDOSE [None]
  - HAEMOGLOBIN DECREASED [None]
  - WEIGHT DECREASED [None]
  - VOMITING [None]
  - LIVER FUNCTION TEST ABNORMAL [None]
  - LOSS OF CONSCIOUSNESS [None]
